FAERS Safety Report 11721807 (Version 3)
Quarter: 2019Q4

REPORT INFORMATION
  Report Type: Spontaneous
  Country: US (occurrence: US)
  Receive Date: 20151111
  Receipt Date: 20191217
  Transmission Date: 20200122
  Serious: Yes (Hospitalization, Other)
  Sender: FDA-Public Use
  Company Number: US-JNJFOC-20151004425

PATIENT
  Age: 44 Year
  Sex: Female

DRUGS (4)
  1. PAROXETINE. [Concomitant]
     Active Substance: PAROXETINE
     Route: 065
  2. XARELTO [Suspect]
     Active Substance: RIVAROXABAN
     Indication: DEEP VEIN THROMBOSIS
     Route: 048
     Dates: start: 20131115, end: 20140110
  3. NASONEX [Concomitant]
     Active Substance: MOMETASONE FUROATE
     Route: 065
  4. TRAMADOL. [Concomitant]
     Active Substance: TRAMADOL
     Route: 065

REACTIONS (2)
  - Menorrhagia [Recovering/Resolving]
  - Gastrointestinal haemorrhage [Unknown]

NARRATIVE: CASE EVENT DATE: 201312
